FAERS Safety Report 6688039-7 (Version None)
Quarter: 2010Q2

REPORT INFORMATION
  Report Type: 
  Country: None (occurrence: None)
  Receive Date: 20100420
  Receipt Date: 20100414
  Transmission Date: 20101027
  Serious: Yes (Other)
  Sender: FDA-Public Use
  Company Number: US-SANOFI-AVENTIS-2010SA022199

PATIENT
  Age: 73 Year
  Sex: Male

DRUGS (3)
  1. PLAVIX [Suspect]
     Route: 048
     Dates: start: 20020101
  2. PLAVIX [Suspect]
     Route: 048
  3. ASPIRIN [Concomitant]

REACTIONS (3)
  - COLON CANCER [None]
  - EPISTAXIS [None]
  - UNDERDOSE [None]
